FAERS Safety Report 6538075-6 (Version None)
Quarter: 2010Q1

REPORT INFORMATION
  Report Type: 
  Country: None (occurrence: None)
  Receive Date: 20100110
  Receipt Date: 20091225
  Transmission Date: 20100710
  Serious: Yes (Hospitalization, Other)
  Sender: FDA-Public Use
  Company Number: 001922

PATIENT
  Sex: Male

DRUGS (11)
  1. ROTIGOTINE (SPM962 (ROTIGOTINE)) [Suspect]
     Indication: PARKINSON'S DISEASE
     Dosage: SEE IMAGE
     Route: 062
     Dates: start: 20081201, end: 20090222
  2. ROTIGOTINE (SPM962 (ROTIGOTINE)) [Suspect]
     Indication: PARKINSON'S DISEASE
     Dosage: SEE IMAGE
     Route: 062
     Dates: start: 20090223, end: 20090301
  3. ROTIGOTINE (SPM962 (ROTIGOTINE)) [Suspect]
     Indication: PARKINSON'S DISEASE
     Dosage: SEE IMAGE
     Route: 062
     Dates: start: 20090302, end: 20091206
  4. ROTIGOTINE (SPM962 (ROTIGOTINE)) [Suspect]
     Indication: PARKINSON'S DISEASE
     Dosage: SEE IMAGE
     Route: 062
     Dates: start: 20091207, end: 20091214
  5. TENORMIN [Suspect]
     Indication: HYPERTENSION
     Dosage: (25 MG ORAL)
     Route: 048
     Dates: start: 20090914, end: 20090920
  6. ERYTHROMYCIN ETHYLSUCCINATE [Concomitant]
  7. HERBALS NOS W/VITAMINS NOS [Concomitant]
  8. TEPRENONE [Concomitant]
  9. FLURBIPROFEN [Concomitant]
  10. BETAMETHASONE VALERATE [Concomitant]
  11. HEPARIN [Concomitant]

REACTIONS (13)
  - BLOOD CREATINE PHOSPHOKINASE INCREASED [None]
  - BLOOD UREA INCREASED [None]
  - CARDIOVASCULAR DISORDER [None]
  - DECREASED APPETITE [None]
  - HYPERTENSION [None]
  - HYPOPHAGIA [None]
  - HYPOTENSION [None]
  - NASOPHARYNGITIS [None]
  - PALLOR [None]
  - PYREXIA [None]
  - SNORING [None]
  - UNEVALUABLE EVENT [None]
  - UNRESPONSIVE TO STIMULI [None]
